FAERS Safety Report 4518215-0 (Version None)
Quarter: 2004Q4

REPORT INFORMATION
  Report Type: 
  Country: None (occurrence: None)
  Receive Date: 20041130
  Receipt Date: 20041119
  Transmission Date: 20050328
  Serious: Yes (Hospitalization, Other)
  Sender: FDA-Public Use
  Company Number: USA-2004-0013500

PATIENT
  Age: 53 Year
  Sex: Female

DRUGS (18)
  1. OXYCONTIN [Suspect]
     Dates: start: 20001001, end: 20030301
  2. OXYCONTIN [Suspect]
     Dates: start: 20001001, end: 20030301
  3. PERCOCET [Suspect]
     Dates: start: 20001001, end: 20030301
  4. DETROL       (TOLTERODONE L-TARTRATE) [Concomitant]
  5. PRILOSEC [Concomitant]
  6. NEURONTIN [Concomitant]
  7. SULFASALAZINE [Concomitant]
  8. ENBREL [Concomitant]
  9. AMITRIPTYLINE HCL [Concomitant]
  10. EVISTA [Concomitant]
  11. IMIPRAMINE [Concomitant]
  12. NASAREL (FLUNISOLIDE) [Concomitant]
  13. MONOPRIL [Concomitant]
  14. CELEBREX [Concomitant]
  15. NEURONTIN [Concomitant]
  16. AMBIEN [Concomitant]
  17. PROZAC [Concomitant]
  18. FLONASE [Concomitant]

REACTIONS (27)
  - ABDOMINAL PAIN [None]
  - ABSCESS [None]
  - AFFECT LABILITY [None]
  - ANGER [None]
  - ANXIETY [None]
  - ARTHRALGIA [None]
  - BACK PAIN [None]
  - DEPRESSION [None]
  - DRUG ABUSER [None]
  - DRUG DEPENDENCE [None]
  - DRUG EFFECT DECREASED [None]
  - HELICOBACTER INFECTION [None]
  - IMPAIRED GASTRIC EMPTYING [None]
  - INSOMNIA [None]
  - MENTAL DISORDER [None]
  - MICTURITION URGENCY [None]
  - MOOD SWINGS [None]
  - MUSCULOSKELETAL STIFFNESS [None]
  - NAUSEA [None]
  - OESOPHAGITIS [None]
  - OVARIAN CYST [None]
  - PAIN [None]
  - PELVIC PAIN [None]
  - POLLAKIURIA [None]
  - POLYSUBSTANCE ABUSE [None]
  - SUICIDAL IDEATION [None]
  - TREMOR [None]
